FAERS Safety Report 7096727 (Version 2)
Quarter: 2014Q2

REPORT INFORMATION
  Report Type: Report from Study
  Country: US (occurrence: US)
  Receive Date: 20090826
  Receipt Date: 20140513
  Transmission Date: 20141212
  Serious: Yes (Hospitalization)
  Sender: FDA-Public Use
  Company Number: US-BIOGENIDEC-2009BI026091

PATIENT
  Age: 30 Year
  Sex: Female

DRUGS (1)
  1. AVONEX [Suspect]
     Indication: MULTIPLE SCLEROSIS
     Route: 030
     Dates: start: 20070418, end: 20070615

REACTIONS (4)
  - Multiple sclerosis relapse [Recovered/Resolved]
  - Peroneal nerve palsy [Unknown]
  - Drug ineffective [Recovered/Resolved]
  - Injection site pain [Recovered/Resolved]
